FAERS Safety Report 9450959 (Version 2)
Quarter: 2013Q4

REPORT INFORMATION
  Report Type: Spontaneous
  Country: CA (occurrence: None)
  Receive Date: 20130807
  Receipt Date: 20131011
  Transmission Date: 20140711
  Serious: Yes (Hospitalization)
  Sender: FDA-Public Use
  Company Number: ACO_37762_2013

PATIENT
  Sex: Female

DRUGS (8)
  1. FAMPYRA (DALFAMPRIDINE) TABLET, 10MG [Suspect]
     Indication: GAIT DISTURBANCE
     Route: 048
     Dates: start: 20121029
  2. ELAVIL (AMITRIPTYLINE HYDROCHLORIDE) [Concomitant]
  3. BACLOFEN (BACLOFEN) [Concomitant]
  4. FOLIC ACID (FOLIC ACID) [Concomitant]
  5. VITAMIN D (COLECALCIFEROL) [Concomitant]
  6. CALCIUM (CALCIUM) [Concomitant]
  7. NITROGLYCERIN (GLYCERAL TRINITRATE) [Concomitant]
  8. NITRODUR (GLYCERYL TRINITRATE) [Concomitant]

REACTIONS (5)
  - Arrhythmia [None]
  - Dehydration [None]
  - Loss of consciousness [None]
  - Asthenia [None]
  - Bundle branch block right [None]
